FAERS Safety Report 23882273 (Version 1)
Quarter: 2024Q2

REPORT INFORMATION
  Report Type: Report from Study
  Country: US (occurrence: US)
  Receive Date: 20240522
  Receipt Date: 20240522
  Transmission Date: 20240716
  Serious: Yes (Other)
  Sender: FDA-Public Use
  Company Number: US-ABBVIE-5759876

PATIENT
  Age: 78 Year
  Sex: Male

DRUGS (1)
  1. SKYRIZI [Suspect]
     Active Substance: RISANKIZUMAB-RZAA
     Indication: Product used for unknown indication
     Route: 058
     Dates: start: 20240509

REACTIONS (15)
  - Eye operation [Unknown]
  - Fatigue [Unknown]
  - Chills [Not Recovered/Not Resolved]
  - Dizziness [Unknown]
  - Dry throat [Unknown]
  - Asthma [Recovering/Resolving]
  - Pneumonia [Unknown]
  - Limb injury [Not Recovered/Not Resolved]
  - Skin laceration [Unknown]
  - Visual impairment [Unknown]
  - Glaucoma [Unknown]
  - Pain [Unknown]
  - Upper respiratory tract infection [Unknown]
  - Hypoacusis [Unknown]
  - Tooth infection [Unknown]

NARRATIVE: CASE EVENT DATE: 20240501
